FAERS Safety Report 5092242-X (Version None)
Quarter: 2006Q3

REPORT INFORMATION
  Report Type: 
  Country: None (occurrence: None)
  Receive Date: 20060828
  Receipt Date: 20060828
  Transmission Date: 20061208
  Serious: No
  Sender: FDA-Public Use
  Company Number: None

PATIENT
  Age: 52 Year
  Sex: Male
  Weight: 79.3795 kg

DRUGS (1)
  1. COLGATE TARTER CONTROL TOOTHPAST COLGATE [Suspect]
     Indication: DENTAL CARE
     Dosage: ENOUGH TO FILL TOOTHBRUSH TWICE DAILY TOP
     Route: 061
     Dates: start: 20060601, end: 20060630

REACTIONS (2)
  - AGEUSIA [None]
  - HYPOAESTHESIA ORAL [None]
